FAERS Safety Report 17921149 (Version 1)
Quarter: 2020Q2

REPORT INFORMATION
  Report Type: Spontaneous
  Country: AU (occurrence: AU)
  Receive Date: 20200622
  Receipt Date: 20200622
  Transmission Date: 20200714
  Serious: Yes (Other)
  Sender: FDA-Public Use
  Company Number: AU-ORION CORPORATION ORION PHARMA-20_00009470

PATIENT
  Age: 44 Year
  Sex: Female

DRUGS (5)
  1. METHOTREXATE (TRADE NAME UNKNOWN) [Suspect]
     Active Substance: METHOTREXATE
     Indication: CUTANEOUS LUPUS ERYTHEMATOSUS
     Route: 048
  2. DIPROSONE [Suspect]
     Active Substance: BETAMETHASONE DIPROPIONATE
     Indication: CUTANEOUS LUPUS ERYTHEMATOSUS
     Route: 061
  3. PLAQUENIL [Suspect]
     Active Substance: HYDROXYCHLOROQUINE SULFATE
     Indication: CUTANEOUS LUPUS ERYTHEMATOSUS
     Route: 048
  4. NOVOSONE [Suspect]
     Active Substance: MOMETASONE FUROATE
     Indication: CUTANEOUS LUPUS ERYTHEMATOSUS
     Route: 061
  5. PREDNISOLONE. [Suspect]
     Active Substance: PREDNISOLONE
     Indication: CUTANEOUS LUPUS ERYTHEMATOSUS
     Route: 048

REACTIONS (3)
  - Product use in unapproved indication [Unknown]
  - Drug ineffective for unapproved indication [Unknown]
  - Cutaneous lupus erythematosus [Unknown]
